FAERS Safety Report 11910304 (Version 1)
Quarter: 2016Q1

REPORT INFORMATION
  Report Type: Spontaneous
  Country: MY (occurrence: MY)
  Receive Date: 20160112
  Receipt Date: 20160112
  Transmission Date: 20160526
  Serious: Yes (Other)
  Sender: FDA-Public Use
  Company Number: MY-SUN PHARMACEUTICAL INDUSTRIES LTD-2015R3-109595

PATIENT
  Age: 49 Year
  Sex: Male

DRUGS (3)
  1. PROLASE [Concomitant]
     Indication: PRODUCT USED FOR UNKNOWN INDICATION
     Dosage: UNK
     Route: 065
  2. CLOXACILLIN [Concomitant]
     Active Substance: CLOXACILLIN
     Indication: PRODUCT USED FOR UNKNOWN INDICATION
     Dosage: UNK
     Route: 065
  3. DIFNAL [Suspect]
     Active Substance: DICLOFENAC SODIUM
     Indication: PAIN
     Dosage: 150 MG, DAILY
     Route: 048

REACTIONS (5)
  - Urticaria [Recovered/Resolved]
  - Angioedema [Recovered/Resolved]
  - Chest discomfort [Recovered/Resolved]
  - Dyspnoea [Recovered/Resolved]
  - Palpitations [Recovered/Resolved]

NARRATIVE: CASE EVENT DATE: 20140903
